FAERS Safety Report 24153660 (Version 3)
Quarter: 2024Q3

REPORT INFORMATION
  Report Type: Spontaneous
  Country: CO (occurrence: CO)
  Receive Date: 20240730
  Receipt Date: 20240816
  Transmission Date: 20241016
  Serious: Yes (Life-Threatening, Disabling, Other)
  Sender: LUNDBECK
  Company Number: CO-SA-SAC20240725000123

PATIENT

DRUGS (7)
  1. CLOBAZAM [Suspect]
     Active Substance: CLOBAZAM
     Indication: Severe myoclonic epilepsy of infancy
     Dosage: 10 MG
     Route: 048
     Dates: start: 1994
  2. CLOBAZAM [Suspect]
     Active Substance: CLOBAZAM
     Dosage: 40 MG, BID (40 MG, BID (40MG / ONCE IN THE MORNING (8:00 AM) AND ONCE AT NIGHT (8:00 PM))
     Route: 048
     Dates: end: 202407
  3. LEVOTHYROXINE [Concomitant]
     Active Substance: LEVOTHYROXINE\LEVOTHYROXINE SODIUM
     Indication: Product used for unknown indication
     Dosage: 75 UG, QD
  4. BRIVIACT [Concomitant]
     Active Substance: BRIVARACETAM
     Indication: Epilepsy
     Dosage: 5 TABLETS OF 5 MG EVERY 8 HOURS
  5. BRIVIACT [Concomitant]
     Active Substance: BRIVARACETAM
     Dosage: 20 ML, QD
  6. BRIVARACETAM [Concomitant]
     Active Substance: BRIVARACETAM
     Indication: Epilepsy
     Dosage: 20 ML DAILY
  7. DOPAMINE [Concomitant]
     Active Substance: DOPAMINE HYDROCHLORIDE
     Indication: Product used for unknown indication
     Dosage: 100 MG

REACTIONS (17)
  - Status epilepticus [Recovered/Resolved]
  - Epilepsy [Not Recovered/Not Resolved]
  - Pneumonia [Not Recovered/Not Resolved]
  - Hypothyroidism [Not Recovered/Not Resolved]
  - Sinus tachycardia [Not Recovered/Not Resolved]
  - Sinusitis [Not Recovered/Not Resolved]
  - Gastritis [Not Recovered/Not Resolved]
  - Hyperammonaemia [Not Recovered/Not Resolved]
  - Sleep apnoea syndrome [Not Recovered/Not Resolved]
  - Bedridden [Not Recovered/Not Resolved]
  - Bradycardia [Recovered/Resolved]
  - Fatigue [Not Recovered/Not Resolved]
  - Insomnia [Not Recovered/Not Resolved]
  - Anxiety [Not Recovered/Not Resolved]
  - Cerebral disorder [Unknown]
  - Seizure [Recovering/Resolving]
  - Body temperature decreased [Recovered/Resolved]

NARRATIVE: CASE EVENT DATE: 20000101
